FAERS Safety Report 18315092 (Version 1)
Quarter: 2020Q3

REPORT INFORMATION
  Report Type: Spontaneous
  Country: US (occurrence: US)
  Receive Date: 20200926
  Receipt Date: 20200926
  Transmission Date: 20201103
  Serious: No
  Sender: FDA-Public Use
  Company Number: US-SA-2020SA263545

PATIENT

DRUGS (1)
  1. AUBAGIO [Suspect]
     Active Substance: TERIFLUNOMIDE
     Indication: MULTIPLE SCLEROSIS
     Dosage: 7 MG, QD
     Route: 048
     Dates: start: 20200828

REACTIONS (7)
  - Oral herpes [Unknown]
  - Muscle spasms [Unknown]
  - Complication associated with device [Unknown]
  - Vaginitis gardnerella [Unknown]
  - Vaginal discharge [Unknown]
  - Condition aggravated [Unknown]
  - Vaginal haemorrhage [Unknown]

NARRATIVE: CASE EVENT DATE: 20200916
